FAERS Safety Report 5520484-5 (Version None)
Quarter: 2007Q4

REPORT INFORMATION
  Report Type: 
  Country: None (occurrence: None)
  Receive Date: 20071119
  Receipt Date: 20071107
  Transmission Date: 20080405
  Serious: Yes (Other)
  Sender: FDA-Public Use
  Company Number: FR-ELI_LILLY_AND_COMPANY-FR200711002117

PATIENT
  Age: 85 Year
  Sex: Female

DRUGS (1)
  1. FORTEO [Suspect]
     Indication: OSTEOPOROSIS
     Dosage: 20 UG, DAILY (1/D)
     Route: 058
     Dates: start: 20060601

REACTIONS (8)
  - BALANCE DISORDER [None]
  - CONDITION AGGRAVATED [None]
  - CYSTITIS [None]
  - DEPRESSED MOOD [None]
  - INTERNATIONAL NORMALISED RATIO ABNORMAL [None]
  - THORACIC VERTEBRAL FRACTURE [None]
  - VERTIGO [None]
  - X-RAY OF PELVIS AND HIP ABNORMAL [None]
